FAERS Safety Report 4678934-2 (Version None)
Quarter: 2005Q2

REPORT INFORMATION
  Report Type: 
  Country: None (occurrence: None)
  Receive Date: 20050525
  Receipt Date: 20050418
  Transmission Date: 20051028
  Serious: No
  Sender: FDA-Public Use
  Company Number: 213917

PATIENT
  Sex: Male
  Weight: 108.8 kg

DRUGS (1)
  1. RAPTIVA [Suspect]
     Indication: PSORIASIS
     Dosage: 0.8 MG/KG, UNKNOWN, SUBCUTANEOUS
     Route: 058
     Dates: start: 20050415

REACTIONS (2)
  - HEADACHE [None]
  - OCULAR HYPERAEMIA [None]
